FAERS Safety Report 20986509 (Version 1)
Quarter: 2022Q2

REPORT INFORMATION
  Report Type: Spontaneous
  Country: US (occurrence: None)
  Receive Date: 20220618
  Receipt Date: 20220618
  Transmission Date: 20220721
  Serious: Yes (Death)
  Sender: FDA-Public Use
  Company Number: None

PATIENT
  Age: 82 Year
  Sex: Male

DRUGS (2)
  1. GENGRAF [Suspect]
     Active Substance: CYCLOSPORINE
     Indication: Renal transplant
     Dosage: 3 CAPSULES TWICE DAILY ORAL?
     Route: 048
     Dates: start: 20201223, end: 20220511
  2. MYCOPHENOLIC ACID [Suspect]
     Active Substance: MYCOPHENOLIC ACID
     Indication: Renal transplant
     Dosage: 2 CAPSULES TWICE DAILY ORAL?
     Route: 048
     Dates: start: 20210212, end: 20220511

REACTIONS (1)
  - Death [None]

NARRATIVE: CASE EVENT DATE: 20220511
